FAERS Safety Report 24181599 (Version 1)
Quarter: 2024Q3

REPORT INFORMATION
  Report Type: Spontaneous
  Country: IN (occurrence: IN)
  Receive Date: 20240807
  Receipt Date: 20240807
  Transmission Date: 20241017
  Serious: Yes (Other)
  Sender: INVENTIA HEALTHCARE
  Company Number: IN-IHL-000594

PATIENT
  Age: 62 Year
  Sex: Female

DRUGS (2)
  1. NITROFURANTOIN [Suspect]
     Active Substance: NITROFURANTOIN
     Indication: Urinary tract discomfort
     Route: 065
  2. NITROFURANTOIN [Suspect]
     Active Substance: NITROFURANTOIN
     Indication: Urinary tract discomfort
     Route: 065

REACTIONS (2)
  - Self-medication [Unknown]
  - Drug-induced liver injury [Recovered/Resolved]
